FAERS Safety Report 11782722 (Version 4)
Quarter: 2015Q4

REPORT INFORMATION
  Report Type: Spontaneous
  Country: JP (occurrence: JP)
  Receive Date: 20151127
  Receipt Date: 20151218
  Transmission Date: 20160305
  Serious: Yes (Hospitalization, Disabling)
  Sender: FDA-Public Use
  Company Number: JP-009507513-1511JPN005254

PATIENT
  Age: 59 Year
  Sex: Female
  Weight: 31 kg

DRUGS (7)
  1. ULTIVA [Suspect]
     Active Substance: REMIFENTANIL HYDROCHLORIDE
     Indication: ANALGESIC THERAPY
     Dosage: DAILY DOSAGE UNKNOWN
     Route: 041
     Dates: start: 20150713, end: 20150713
  2. DIPRIVAN [Suspect]
     Active Substance: PROPOFOL
     Indication: INDUCTION OF ANAESTHESIA
     Dosage: 60 MG, ONCE
     Route: 042
     Dates: start: 20150713, end: 20150713
  3. ESLAX INTRAVENOUS 25MG/2.5ML [Suspect]
     Active Substance: ROCURONIUM BROMIDE
     Indication: NEUROMUSCULAR BLOCKING THERAPY
     Dosage: 20 MG, ONCE
     Route: 042
     Dates: start: 20150713, end: 20150713
  4. RANITIZANE [Suspect]
     Active Substance: RANITIDINE HYDROCHLORIDE
     Indication: ANAESTHETIC PREMEDICATION
     Dosage: 150 MG, QD
     Route: 048
     Dates: start: 20150712, end: 20150713
  5. EPHEDRINE HYDROCHLORIDE [Suspect]
     Active Substance: EPHEDRINE HYDROCHLORIDE
     Indication: BLOOD PRESSURE MANAGEMENT
     Dosage: 5 MG, BID
     Route: 042
     Dates: start: 20150713, end: 20150713
  6. BRIDION [Suspect]
     Active Substance: SUGAMMADEX
     Indication: NEUROMUSCULAR BLOCKADE REVERSAL
     Dosage: 60 MG, ONCE
     Route: 042
     Dates: start: 20150713, end: 20150713
  7. SUPRANE [Suspect]
     Active Substance: DESFLURANE
     Indication: MAINTENANCE OF ANAESTHESIA
     Dosage: 80 MG, ONCE
     Route: 055
     Dates: start: 20150713, end: 20150713

REACTIONS (1)
  - Adrenal insufficiency [Recovering/Resolving]

NARRATIVE: CASE EVENT DATE: 20150713
